FAERS Safety Report 5752569-2 (Version None)
Quarter: 2008Q2

REPORT INFORMATION
  Report Type: 
  Country: None (occurrence: None)
  Receive Date: 20080529
  Receipt Date: 20080526
  Transmission Date: 20081010
  Serious: Yes (Other)
  Sender: FDA-Public Use
  Company Number: PHBS2006BR13523

PATIENT
  Age: 48 Year
  Sex: Female
  Weight: 80 kg

DRUGS (3)
  1. ESTRADERM [Suspect]
     Indication: MENOPAUSE
     Dosage: 50 UG/DAY
     Route: 062
     Dates: start: 20050101
  2. PAROXETINE HCL [Concomitant]
     Indication: PANIC DISORDER
     Dosage: 10 MG, QD
     Route: 048
  3. RIVOTRIL [Concomitant]
     Indication: ANXIETY
     Dosage: 2 MG, QD
     Route: 048
     Dates: start: 20020101

REACTIONS (14)
  - ANXIETY [None]
  - CHILLS [None]
  - COLD SWEAT [None]
  - DEPRESSION [None]
  - EMOTIONAL DISORDER [None]
  - FEELING HOT [None]
  - HEART RATE INCREASED [None]
  - HOT FLUSH [None]
  - HYPERHIDROSIS [None]
  - IRRITABILITY [None]
  - MALAISE [None]
  - MEMORY IMPAIRMENT [None]
  - PANIC ATTACK [None]
  - TREMOR [None]
